FAERS Safety Report 4714607-5 (Version None)
Quarter: 2005Q3

REPORT INFORMATION
  Report Type: 
  Country: None (occurrence: None)
  Receive Date: 20050714
  Receipt Date: 20050714
  Transmission Date: 20060218
  Serious: Yes (Disabling)
  Sender: FDA-Public Use
  Company Number: None

PATIENT
  Age: 34 Year
  Sex: Male
  Weight: 77.1115 kg

DRUGS (1)
  1. VIAGRA [Suspect]
     Indication: PREMATURE EJACULATION
     Dosage: ONE-HALF 1 HR BEFORE SEX ORAL
     Route: 048

REACTIONS (5)
  - BALANCE DISORDER [None]
  - DIZZINESS [None]
  - DIZZINESS POSTURAL [None]
  - MOTION SICKNESS [None]
  - PHOTOPHOBIA [None]
